FAERS Safety Report 9863685 (Version 1)
Quarter: 2014Q1

REPORT INFORMATION
  Report Type: Spontaneous
  Country: US (occurrence: US)
  Receive Date: 20140203
  Receipt Date: 20140203
  Transmission Date: 20141002
  Serious: Yes (Other)
  Sender: FDA-Public Use
  Company Number: PHHY2014US011583

PATIENT
  Age: 25 Year
  Sex: Female

DRUGS (5)
  1. CICLOSPORIN [Suspect]
     Indication: IMMUNOSUPPRESSION
     Dosage: 125 MG, EVERY 12HR
     Route: 048
  2. PREDNISONE [Suspect]
     Indication: IMMUNOSUPPRESSION
     Dosage: 15 MG, EVERY DAY
     Route: 048
  3. RANITIDINE [Suspect]
     Dosage: 150 MG, BID
     Route: 048
  4. FERROUS SULFATE [Suspect]
     Dosage: 300 MG, TID
     Route: 048
  5. RIOPAN [Suspect]
     Dosage: 30 ML, EVERY 4HR
     Route: 048

REACTIONS (6)
  - Cytomegalovirus hepatitis [Recovered/Resolved]
  - Pre-eclampsia [Unknown]
  - Foetal distress syndrome [Unknown]
  - Anaemia [Unknown]
  - Premature labour [Unknown]
  - Maternal exposure during pregnancy [Unknown]
